FAERS Safety Report 21466598 (Version 12)
Quarter: 2023Q1

REPORT INFORMATION
  Report Type: Report from Study
  Country: GB (occurrence: GB)
  Receive Date: 20221017
  Receipt Date: 20230330
  Transmission Date: 20230418
  Serious: Yes (Congenital Anomaly, Other)
  Sender: FDA-Public Use
  Company Number: GB-GILEAD-2022-0601181

PATIENT
  Age: 6 Month
  Sex: Female
  Weight: 2.48 kg

DRUGS (13)
  1. EMTRICITABINE\TENOFOVIR DISOPROXIL FUMARATE [Suspect]
     Active Substance: EMTRICITABINE\TENOFOVIR DISOPROXIL FUMARATE
     Indication: HIV infection
     Dosage: 1 DOSAGE FORM, QD
     Route: 064
     Dates: start: 20210719
  2. EMTRICITABINE\TENOFOVIR DISOPROXIL FUMARATE [Suspect]
     Active Substance: EMTRICITABINE\TENOFOVIR DISOPROXIL FUMARATE
     Indication: Foetal exposure during pregnancy
     Dosage: MATERNAL EXPOSURE DURING PREGNANCY: 1 DOSAGE FORM, QD (1 COURSES, EXPOSURE NO PRIOR TO CONCEPTION AN
     Route: 064
  3. COBICISTAT\ELVITEGRAVIR\EMTRICITABINE\TENOFOVIR [Suspect]
     Active Substance: COBICISTAT\ELVITEGRAVIR\EMTRICITABINE\TENOFOVIR
     Indication: HIV infection
     Dosage: 1 DOSAGE FORM, QD
     Route: 064
     Dates: end: 20210718
  4. RITONAVIR [Suspect]
     Active Substance: RITONAVIR
     Indication: HIV infection
     Dosage: 100 MG, QD
     Route: 064
     Dates: start: 20211221
  5. RITONAVIR [Suspect]
     Active Substance: RITONAVIR
     Dosage: 100 MILLIGRAM, QD
     Route: 064
     Dates: start: 20211229
  6. RITONAVIR [Suspect]
     Active Substance: RITONAVIR
     Dosage: UNK
     Route: 064
  7. RALTEGRAVIR [Suspect]
     Active Substance: RALTEGRAVIR
     Indication: HIV infection
     Dosage: 300 MG, QD
     Route: 064
     Dates: start: 20210721, end: 20211228
  8. RALTEGRAVIR [Suspect]
     Active Substance: RALTEGRAVIR
     Dosage: MATERNAL EXPOSURE DURING PREGNANCY: 300MG QD
     Route: 064
     Dates: start: 20210719, end: 20211228
  9. DOLUTEGRAVIR [Suspect]
     Active Substance: DOLUTEGRAVIR
     Indication: HIV infection
     Dosage: 50 MG, QD
     Route: 064
     Dates: start: 20220125
  10. REYATAZ [Suspect]
     Active Substance: ATAZANAVIR SULFATE
     Indication: HIV infection
     Dosage: 300 MILLIGRAM, QD
     Route: 064
     Dates: start: 20211221
  11. REYATAZ [Suspect]
     Active Substance: ATAZANAVIR SULFATE
     Dosage: UNK
     Route: 064
  12. REYATAZ [Suspect]
     Active Substance: ATAZANAVIR SULFATE
     Dosage: 300 MILLIGRAM, QD
     Route: 064
     Dates: start: 20211229
  13. ATAZANAVIR [Concomitant]
     Active Substance: ATAZANAVIR
     Indication: Product used for unknown indication
     Dosage: 300 MG
     Dates: start: 20211221

REACTIONS (5)
  - Renal dysplasia [Not Recovered/Not Resolved]
  - Renal aplasia [Unknown]
  - Single functional kidney [Not Recovered/Not Resolved]
  - Foetal exposure during pregnancy [Unknown]
  - Foetal exposure during delivery [Unknown]

NARRATIVE: CASE EVENT DATE: 20220221
